FAERS Safety Report 8819125 (Version 1)
Quarter: 2012Q4

REPORT INFORMATION
  Report Type: Report from Study
  Country: FR (occurrence: FR)
  Receive Date: 20121001
  Receipt Date: 20121001
  Transmission Date: 20130627
  Serious: Yes (Hospitalization, Other)
  Sender: FDA-Public Use
  Company Number: FR-MPIJNJ-2012-06670

PATIENT

DRUGS (15)
  1. VELCADE [Suspect]
     Indication: MULTIPLE MYELOMA
     Dosage: 1.3 mg/m2, UNK
     Route: 042
     Dates: start: 20120615, end: 20120706
  2. DEXAMETHASONE [Suspect]
     Indication: MULTIPLE MYELOMA
     Dosage: 20 mg, UNK
     Route: 048
     Dates: start: 20120615, end: 20120706
  3. BISOPROLOL [Concomitant]
  4. TEGRETOL [Concomitant]
  5. CALCIUM [Concomitant]
  6. VITAMIN D3 [Concomitant]
  7. NEORECORMON [Concomitant]
  8. CONTRAMAL [Concomitant]
  9. AMLOR [Concomitant]
  10. BACTRIM [Concomitant]
  11. ZELITREX                           /01269701/ [Concomitant]
  12. KAYEXALATE [Concomitant]
  13. RAMIPRIL [Concomitant]
  14. RILMENIDINE [Concomitant]
  15. LOXEN [Concomitant]

REACTIONS (1)
  - Arteriovenous fistula thrombosis [Recovered/Resolved]
